FAERS Safety Report 13145318 (Version 2)
Quarter: 2017Q1

REPORT INFORMATION
  Report Type: Report from Study
  Country: AT (occurrence: AT)
  Receive Date: 20170124
  Receipt Date: 20170208
  Transmission Date: 20170428
  Serious: Yes (Hospitalization, Other)
  Sender: FDA-Public Use
  Company Number: AT-INCYTE CORPORATION-2016IN008287

PATIENT
  Age: 79 Year
  Sex: Male
  Weight: 69.8 kg

DRUGS (6)
  1. JAKAVI [Suspect]
     Active Substance: RUXOLITINIB
     Dosage: 20 MG, QD
     Route: 048
     Dates: start: 20161130, end: 20161216
  2. JAKAVI [Suspect]
     Active Substance: RUXOLITINIB
     Dosage: 20 MG, UNK
     Route: 048
     Dates: start: 20150707, end: 20150712
  3. JAKAVI [Suspect]
     Active Substance: RUXOLITINIB
     Indication: MYELOFIBROSIS
     Dosage: 40 MG, UNK
     Route: 048
     Dates: start: 20110817, end: 20130701
  4. IDELALISIB [Concomitant]
     Active Substance: IDELALISIB
     Indication: PRODUCT USED FOR UNKNOWN INDICATION
     Route: 065
     Dates: start: 20150923, end: 201602
  5. JAKAVI [Suspect]
     Active Substance: RUXOLITINIB
     Dosage: 40 MG, UNK
     Route: 048
     Dates: start: 20130702, end: 20150706
  6. LITALIR [Concomitant]
     Active Substance: HYDROXYUREA
     Indication: PRODUCT USED FOR UNKNOWN INDICATION
     Dosage: 1000 MG, UNK
     Route: 065
     Dates: start: 20100122, end: 20110718

REACTIONS (14)
  - White blood cell count decreased [Unknown]
  - Chronic lymphocytic leukaemia [Unknown]
  - Pancytopenia [Unknown]
  - Cardiomegaly [Unknown]
  - Pyrexia [Unknown]
  - Upper respiratory tract infection [Recovered/Resolved]
  - Cerebral atrophy [Unknown]
  - Confusional state [Recovered/Resolved]
  - Anaemia [Recovered/Resolved]
  - Blood sodium decreased [Unknown]
  - Leukoencephalopathy [Unknown]
  - Pneumocystis jirovecii infection [Unknown]
  - Polyneuropathy [Unknown]
  - Ataxia [Unknown]

NARRATIVE: CASE EVENT DATE: 201302
